FAERS Safety Report 16404472 (Version 1)
Quarter: 2019Q2

REPORT INFORMATION
  Report Type: Spontaneous
  Country: US (occurrence: US)
  Receive Date: 20190607
  Receipt Date: 20190607
  Transmission Date: 20190711
  Serious: No
  Sender: FDA-Public Use
  Company Number: US-PTC THERAPEUTICS, INC.-US-2019PTC000574

PATIENT
  Age: 5 Year
  Sex: Male

DRUGS (3)
  1. EMFLAZA [Suspect]
     Active Substance: DEFLAZACORT
     Indication: DUCHENNE MUSCULAR DYSTROPHY
     Dosage: 27 MG, QD
     Route: 048
     Dates: start: 20180806
  2. EMFLAZA [Suspect]
     Active Substance: DEFLAZACORT
     Dosage: 30 MG, QD
     Route: 048
  3. EMFLAZA [Suspect]
     Active Substance: DEFLAZACORT
     Dosage: HIGH DOSE WEEKEND THERAPY

REACTIONS (8)
  - Screaming [Unknown]
  - Behaviour disorder [Unknown]
  - Frustration tolerance decreased [Unknown]
  - Weight increased [Unknown]
  - Aggression [Unknown]
  - Growth retardation [Unknown]
  - Off label use [Unknown]
  - Anger [Unknown]

NARRATIVE: CASE EVENT DATE: 201803
